FAERS Safety Report 4816019-2 (Version None)
Quarter: 2005Q4

REPORT INFORMATION
  Report Type: 
  Country: None (occurrence: None)
  Receive Date: 20051026
  Receipt Date: 20051013
  Transmission Date: 20060501
  Serious: Yes (Disabling, Other)
  Sender: FDA-Public Use
  Company Number: 2005142346

PATIENT
  Sex: Male
  Weight: 95.2554 kg

DRUGS (11)
  1. LOPID [Suspect]
     Indication: BLOOD CHOLESTEROL INCREASED
     Dosage: 1200 MG (600 MG, 2 IN 1 D), ORAL
     Route: 048
  2. GLUCOPHAGE [Concomitant]
  3. CLARINEX [Concomitant]
  4. SPIRIVA [Concomitant]
  5. MULTIVITAMIN [Concomitant]
  6. CALCIUM (CALCIUM) [Concomitant]
  7. PREVACID [Concomitant]
  8. AMARYL [Concomitant]
  9. NIACIN [Concomitant]
  10. BENICAR [Concomitant]
  11. LEXAPRO [Concomitant]

REACTIONS (3)
  - LOSS OF EMPLOYMENT [None]
  - RESPIRATORY DISORDER [None]
  - STRESS AT WORK [None]
